FAERS Safety Report 18338260 (Version 1)
Quarter: 2020Q4

REPORT INFORMATION
  Report Type: Spontaneous
  Country: US (occurrence: US)
  Receive Date: 20201001
  Receipt Date: 20201001
  Transmission Date: 20210113
  Serious: No
  Sender: FDA-Public Use
  Company Number: None

PATIENT
  Age: 69 Year
  Sex: Female
  Weight: 52.62 kg

DRUGS (13)
  1. CAPECITABINE. [Suspect]
     Active Substance: CAPECITABINE
     Indication: COLON CANCER
     Route: 048
     Dates: start: 20200831, end: 20200915
  2. EPINEPHRINE. [Concomitant]
     Active Substance: EPINEPHRINE
  3. FAMOTIDINE 20MG [Concomitant]
     Active Substance: FAMOTIDINE
  4. DEXAMETHASONE 4MG [Concomitant]
     Active Substance: DEXAMETHASONE
  5. VITAMIN D3 [Concomitant]
     Active Substance: CHOLECALCIFEROL
  6. VITAMIN K1 [Concomitant]
     Active Substance: PHYTONADIONE
  7. PROCHLORPERAZINE 10MG [Concomitant]
  8. LEVOTHYROXINE 100MCG [Concomitant]
     Active Substance: LEVOTHYROXINE
  9. VITAMIN B COMPLEX [Concomitant]
     Active Substance: CYANOCOBALAMIN\DEXPANTHENOL\NIACINAMIDE\PYRIDOXINE HYDROCHLORIDE\RIBOFLAVIN 5^-PHOSPHATE SODIUM\THIAMINE HYDROCHLORIDE\VITAMIN B COMPLEX
  10. FERROUS SULFATE 324 [Concomitant]
  11. LORAZEPAM 0.5MG [Concomitant]
     Active Substance: LORAZEPAM
  12. ONDANSETRON 8MG [Concomitant]
     Active Substance: ONDANSETRON
  13. SOLUDEDROL 125MG [Concomitant]

REACTIONS (4)
  - Diarrhoea [None]
  - Blood potassium decreased [None]
  - Aphasia [None]
  - Fatigue [None]
